FAERS Safety Report 6912860-0 (Version None)
Quarter: 2010Q3

REPORT INFORMATION
  Report Type: 
  Country: None (occurrence: None)
  Receive Date: 20100806
  Receipt Date: 20090223
  Transmission Date: 20110219
  Serious: No
  Sender: FDA-Public Use
  Company Number: US-PFIZER INC-2009176447

PATIENT
  Sex: Female

DRUGS (4)
  1. DILANTIN-125 [Suspect]
     Indication: GRAND MAL CONVULSION
     Dosage: 300 MG, UNK
     Dates: start: 19470101
  2. PRILOSEC [Suspect]
     Indication: OESOPHAGITIS
     Dates: start: 20081109, end: 20081201
  3. PROTONIX [Interacting]
     Indication: OESOPHAGITIS
     Dosage: 40 MG, 1X/DAY
     Dates: start: 20081201
  4. ZARONTIN [Concomitant]
     Dosage: UNK

REACTIONS (4)
  - HEPATIC ENZYME INCREASED [None]
  - HEPATIC FUNCTION ABNORMAL [None]
  - OESOPHAGITIS [None]
  - WEIGHT DECREASED [None]
